FAERS Safety Report 4400740-4 (Version None)
Quarter: 2004Q3

REPORT INFORMATION
  Report Type: 
  Country: None (occurrence: None)
  Receive Date: 20040714
  Receipt Date: 20040618
  Transmission Date: 20050211
  Serious: Yes (Death)
  Sender: FDA-Public Use
  Company Number: RB-774-2004

PATIENT
  Age: 18 Year
  Sex: Male

DRUGS (3)
  1. BUPRENORPHINE HYDROCHLORIDE [Suspect]
     Indication: DRUG DEPENDENCE
     Dosage: 8 MG/2 MG, SL
     Route: 060
     Dates: start: 20031023, end: 20031109
  2. BUPRENORPHINE HYDROCHLORIDE [Suspect]
     Indication: DRUG DEPENDENCE
     Dosage: 8 MG/2 MG, SL
     Route: 060
     Dates: start: 20031110, end: 20040604
  3. BUPRENORPHINE HYDROCHLORIDE [Suspect]
     Indication: DRUG DEPENDENCE
     Dosage: 8 MG/2 MG, SL
     Route: 060
     Dates: start: 20040605, end: 20040605

REACTIONS (1)
  - HEPATITIS C POSITIVE [None]
